FAERS Safety Report 4723347-8 (Version None)
Quarter: 2005Q3

REPORT INFORMATION
  Report Type: 
  Country: None (occurrence: None)
  Receive Date: 20050719
  Receipt Date: 20050314
  Transmission Date: 20060218
  Serious: Yes (Other)
  Sender: FDA-Public Use
  Company Number: 2005BI005690

PATIENT
  Age: 26 Year
  Sex: Female
  Weight: 100.2449 kg

DRUGS (6)
  1. AVONEX [Suspect]
     Indication: MULTIPLE SCLEROSIS
     Dosage: 30 UG; QW; IM
     Route: 030
     Dates: start: 20010101, end: 20030101
  2. AVONEX [Suspect]
     Indication: MULTIPLE SCLEROSIS
     Dosage: 30 UG; QW; IM
     Route: 030
     Dates: start: 20030101, end: 20050303
  3. VICODIN [Concomitant]
  4. TYLENOL [Concomitant]
  5. ALBUTEROL [Concomitant]
  6. COPAXONE [Concomitant]

REACTIONS (4)
  - ABORTION SPONTANEOUS [None]
  - MULTIPLE SCLEROSIS [None]
  - STOMACH DISCOMFORT [None]
  - TOOTH DISORDER [None]
